FAERS Safety Report 10149342 (Version 1)
Quarter: 2014Q2

REPORT INFORMATION
  Report Type: Spontaneous
  Country: US (occurrence: None)
  Receive Date: 20140430
  Receipt Date: 20140430
  Transmission Date: 20141212
  Serious: Yes (Other)
  Sender: FDA-Public Use
  Company Number: VAL_03084_2014

PATIENT
  Sex: Female
  Weight: 157 kg

DRUGS (26)
  1. LOPRESSOR (NOT SPECIFIED) [Suspect]
     Indication: ATRIAL FIBRILLATION
     Dosage: (DF)
     Dates: start: 2004, end: 2012
  2. AMPYRA [Suspect]
     Indication: GAIT DISTURBANCE
     Dosage: 12 HOURS
     Route: 048
     Dates: start: 2010
  3. SOTALOL [Suspect]
     Indication: ATRIAL FIBRILLATION
     Dosage: (DF)
     Route: 048
     Dates: start: 2012, end: 2014
  4. SOTALOL [Suspect]
     Indication: VENTRICULAR EXTRASYSTOLES
     Dosage: (DF)
     Route: 048
     Dates: start: 2012, end: 2014
  5. ARICEPT [Concomitant]
  6. ASPIRIN [Concomitant]
  7. BACLOFEN [Concomitant]
  8. DETROL LA [Concomitant]
  9. SYNTHROID [Concomitant]
  10. NEURONTIN [Concomitant]
  11. NEXIUM /01479302/ [Concomitant]
  12. NUVIGIL [Concomitant]
  13. TYSABRI [Concomitant]
  14. ZOLOFT [Concomitant]
  15. MULTIVITAMINS WITH IRON [Concomitant]
  16. FISH OIL [Concomitant]
  17. VITAMIN B6 [Concomitant]
  18. VITAMIN B12 /00056201/ [Concomitant]
  19. CALCIUM + VITAMIN D3 [Concomitant]
  20. BIOTIN [Concomitant]
  21. LYSINE [Concomitant]
  22. AMOXICILLIN [Concomitant]
  23. INFLUENZA [Concomitant]
  24. COMBIVENT [Concomitant]
  25. DOXYCYCLINE [Concomitant]
  26. FLONASE [Concomitant]

REACTIONS (7)
  - Atrial fibrillation [None]
  - Heart rate decreased [None]
  - Surgery [None]
  - Ventricular extrasystoles [None]
  - Hypotension [None]
  - Chest pain [None]
  - Blood pressure systolic increased [None]
